FAERS Safety Report 15862036 (Version 1)
Quarter: 2018Q4

REPORT INFORMATION
  Report Type: Spontaneous
  Country: US (occurrence: US)
  Receive Date: 20181231
  Receipt Date: 20181231
  Transmission Date: 20190205
  Serious: Yes (Life-Threatening, Hospitalization)
  Sender: FDA-Public Use
  Company Number: None

PATIENT
  Age: 80 Year
  Sex: Male
  Weight: 75.7 kg

DRUGS (1)
  1. MIRCERA [Suspect]
     Active Substance: METHOXY POLYETHYLENE GLYCOL-EPOETIN BETA
     Indication: NEPHROGENIC ANAEMIA
     Dosage: ?          OTHER FREQUENCY:EVERY 4 WEEKS;?
     Route: 040
     Dates: start: 20180612, end: 20180612

REACTIONS (3)
  - Erythema [None]
  - Drug hypersensitivity [None]
  - Unresponsive to stimuli [None]

NARRATIVE: CASE EVENT DATE: 20180612
